FAERS Safety Report 20074479 (Version 1)
Quarter: 2021Q4

REPORT INFORMATION
  Report Type: Spontaneous
  Country: US (occurrence: None)
  Receive Date: 20211115
  Receipt Date: 20211115
  Transmission Date: 20220303
  Serious: Yes (Life-Threatening, Hospitalization)
  Sender: FDA-Public Use
  Company Number: None

PATIENT
  Age: 60 Year
  Sex: Female
  Weight: 55.79 kg

DRUGS (1)
  1. VITAMIN D [Suspect]
     Active Substance: VITAMIN D NOS
     Indication: Vitamin D deficiency
     Dates: start: 20200201, end: 20210630

REACTIONS (8)
  - Hypercalcaemia [None]
  - Hypervitaminosis [None]
  - Hypervitaminosis [None]
  - Acute kidney injury [None]
  - Nausea [None]
  - Lethargy [None]
  - Polyuria [None]
  - Polydipsia [None]

NARRATIVE: CASE EVENT DATE: 20210807
